FAERS Safety Report 4417749-7 (Version None)
Quarter: 2004Q2

REPORT INFORMATION
  Report Type: 
  Country: None (occurrence: None)
  Receive Date: 20040621
  Receipt Date: 20040329
  Transmission Date: 20050107
  Serious: Yes (Other)
  Sender: FDA-Public Use
  Company Number: PHEH2004US03582

PATIENT
  Age: 59 Year
  Sex: Female

DRUGS (5)
  1. ZOMETA [Suspect]
     Indication: BREAST CANCER METASTATIC
     Dosage: 4 MG EVERY 3 WEEKS, INTRAVENOUS
     Route: 042
     Dates: start: 20010101, end: 20040101
  2. LASIX [Concomitant]
  3. ATENOLOL [Concomitant]
  4. FEMARA [Concomitant]
  5. DECADRON [Concomitant]

REACTIONS (6)
  - ABSCESS DRAINAGE [None]
  - ASEPTIC NECROSIS BONE [None]
  - BONE DISORDER [None]
  - FISTULA [None]
  - INFECTION [None]
  - PAIN [None]
